FAERS Safety Report 13453199 (Version 1)
Quarter: 2017Q2

REPORT INFORMATION
  Report Type: Not Available
  Country: US (occurrence: US)
  Receive Date: 20170418
  Receipt Date: 20170418
  Transmission Date: 20170830
  Serious: No
  Sender: FDA-Public Use
  Company Number: US-ANIPHARMA-2016-US-008995

PATIENT
  Sex: 0

DRUGS (1)
  1. PROPRANOLOL EXTENDED RELEASE CAPSULES (NON-SPECIFIC) [Suspect]
     Active Substance: PROPRANOLOL HYDROCHLORIDE
     Route: 048

REACTIONS (1)
  - Medication error [Unknown]
